FAERS Safety Report 5340656-2 (Version None)
Quarter: 2007Q2

REPORT INFORMATION
  Report Type: 
  Country: None (occurrence: None)
  Receive Date: 20070531
  Receipt Date: 20070522
  Transmission Date: 20071010
  Serious: Yes (Hospitalization, Disabling, Other)
  Sender: FDA-Public Use
  Company Number: GB-PFIZER INC-2007041599

PATIENT
  Age: 21 Year
  Sex: Female
  Weight: 46 kg

DRUGS (3)
  1. SERTRALINE [Suspect]
     Indication: DEPRESSION
     Route: 048
     Dates: start: 20070206, end: 20070214
  2. PROZAC [Concomitant]
     Route: 048
     Dates: start: 20051201, end: 20061208
  3. SLOW-K [Concomitant]
     Route: 048

REACTIONS (2)
  - ARRHYTHMIA [None]
  - SYNCOPE [None]
